FAERS Safety Report 6747105-8 (Version None)
Quarter: 2010Q2

REPORT INFORMATION
  Report Type: 
  Country: None (occurrence: None)
  Receive Date: 20100526
  Receipt Date: 20100518
  Transmission Date: 20101027
  Serious: Yes (Hospitalization)
  Sender: FDA-Public Use
  Company Number: 2010SP027392

PATIENT
  Age: 22 Year
  Sex: Female
  Weight: 77 kg

DRUGS (6)
  1. ROCURONIUM BROMIDE [Suspect]
     Indication: ANAESTHESIA
     Dosage: 1.5 MG/KG;
  2. PROPOFOL [Suspect]
     Indication: ANAESTHESIA
     Dosage: 4 MCG/KG;
  3. FENTANYL-100 [Suspect]
     Indication: ANAESTHESIA
     Dosage: 1.5 MCG/KG;
  4. IRBESARTAN [Suspect]
     Indication: DRUG USE FOR UNKNOWN INDICATION
     Dosage: 300 MG; TID;
  5. TRIFLUSAL [Concomitant]
  6. MIDAZOLAM HCL [Concomitant]

REACTIONS (5)
  - ATELECTASIS [None]
  - BRONCHOSPASM [None]
  - DYSARTHRIA [None]
  - MONOPARESIS [None]
  - WHEEZING [None]
